FAERS Safety Report 4967638-4 (Version None)
Quarter: 2006Q2

REPORT INFORMATION
  Report Type: 
  Country: None (occurrence: None)
  Receive Date: 20060407
  Receipt Date: 20060407
  Transmission Date: 20061013
  Serious: Yes (Death)
  Sender: FDA-Public Use
  Company Number: None

PATIENT
  Sex: Male
  Weight: 84.4 kg

DRUGS (6)
  1. DAUNORUBICIN HCL [Suspect]
     Indication: ACUTE LYMPHOCYTIC LEUKAEMIA
     Dosage: 357 MG
     Dates: start: 20060129
  2. DEXAMETHASONE [Suspect]
     Dosage: 70 MG
     Dates: start: 20060202
  3. G-CSF (FILGRASTIM, AMGEN) [Suspect]
     Dosage: 9120 MCG
     Dates: start: 20060217
  4. L-ASPARAGINASE [Suspect]
     Dosage: 47760 UNIT
     Dates: start: 20060210
  5. VINCRISTINE SULFATE [Suspect]
     Dosage: 6 MG
     Dates: start: 20060210
  6. ALLOPURINOL [Suspect]
     Dosage: 4200 MG
     Dates: start: 20060209

REACTIONS (3)
  - INFLUENZA [None]
  - MULTI-ORGAN FAILURE [None]
  - PNEUMONIA [None]
